FAERS Safety Report 5635231-6 (Version None)
Quarter: 2008Q1

REPORT INFORMATION
  Report Type: 
  Country: None (occurrence: None)
  Receive Date: 20080222
  Receipt Date: 20080125
  Transmission Date: 20080703
  Serious: No
  Sender: FDA-Public Use
  Company Number: US-BOEHRINGER INGELHEIM GMBH, GERMANY-2008-BP-01220BP

PATIENT
  Sex: Female

DRUGS (4)
  1. ZANTAC 75 [Suspect]
     Indication: BARRETT'S OESOPHAGUS
     Route: 048
     Dates: start: 20080119, end: 20080123
  2. ZANTAC 75 [Suspect]
     Indication: REFLUX OESOPHAGITIS
  3. TOPROL [Concomitant]
     Indication: HYPERTENSION
  4. ATIVAN [Concomitant]
     Indication: ANXIETY

REACTIONS (1)
  - NAUSEA [None]
